FAERS Safety Report 25442590 (Version 1)
Quarter: 2025Q2

REPORT INFORMATION
  Report Type: Spontaneous
  Country: US (occurrence: US)
  Receive Date: 20250617
  Receipt Date: 20250617
  Transmission Date: 20250716
  Serious: Yes (Other)
  Sender: STRIDES
  Company Number: US-STRIDES ARCOLAB LIMITED-2024SP016278

PATIENT
  Age: 10 Year
  Sex: Female

DRUGS (3)
  1. HYDROCORTISONE [Suspect]
     Active Substance: HYDROCORTISONE
     Indication: Dermatitis atopic
     Route: 061
  2. MOMETASONE [Suspect]
     Active Substance: MOMETASONE
     Indication: Dermatitis atopic
     Route: 061
  3. CIMETIDINE [Concomitant]
     Active Substance: CIMETIDINE
     Indication: Skin papilloma
     Route: 065

REACTIONS (1)
  - Therapy non-responder [Unknown]
